FAERS Safety Report 15639690 (Version 5)
Quarter: 2020Q3

REPORT INFORMATION
  Report Type: Spontaneous
  Country: JP (occurrence: JP)
  Receive Date: 20181120
  Receipt Date: 20200715
  Transmission Date: 20201102
  Serious: Yes (Hospitalization, Other)
  Sender: FDA-Public Use
  Company Number: JP-GLAXOSMITHKLINE-JP2018JPN209164

PATIENT
  Age: 4 Decade
  Sex: Male

DRUGS (2)
  1. EPZICOM [Suspect]
     Active Substance: ABACAVIR SULFATE\LAMIVUDINE
     Indication: HIV INFECTION
     Dosage: UNK
     Route: 048
  2. TIVICAY [Suspect]
     Active Substance: DOLUTEGRAVIR SODIUM
     Indication: HIV INFECTION
     Dosage: UNK
     Route: 048

REACTIONS (8)
  - Lipids abnormal [Unknown]
  - Swelling [Unknown]
  - Neck pain [Unknown]
  - Blood creatine phosphokinase increased [Unknown]
  - Hyperthermia [Unknown]
  - Autoimmune thyroiditis [Unknown]
  - Immune reconstitution inflammatory syndrome [Unknown]
  - Hypothyroidism [Unknown]
